FAERS Safety Report 6451847-1 (Version None)
Quarter: 2009Q4

REPORT INFORMATION
  Report Type: 
  Country: None (occurrence: None)
  Receive Date: 20091123
  Receipt Date: 20091110
  Transmission Date: 20100525
  Serious: Yes (Hospitalization)
  Sender: FDA-Public Use
  Company Number: NO-ELI_LILLY_AND_COMPANY-NO200911002988

PATIENT
  Sex: Male

DRUGS (7)
  1. ZYPREXA [Suspect]
     Indication: SOMATOFORM DISORDER
     Dosage: 20 MG, 2/D
     Route: 048
     Dates: end: 20091001
  2. LIPITOR [Concomitant]
     Dosage: 40 MG IN THE EVENING
     Route: 065
  3. ZELDOX [Concomitant]
     Indication: SOMATOFORM DISORDER
     Dosage: 20 MG, DAILY (1/D)
     Route: 048
     Dates: start: 20091001
  4. CIPRALEX [Concomitant]
     Indication: DEPRESSION
     Dosage: 15 MG, DAILY (1/D)
     Route: 048
  5. VALLERGAN [Concomitant]
     Indication: ANXIETY
     Dosage: 10 MG, DAILY (1/D)
     Route: 048
  6. SELO-ZOK [Concomitant]
     Dosage: 100 MG, DAILY (1/D)
     Route: 048
  7. SOBRIL [Concomitant]
     Indication: ANXIETY
     Dosage: 15 MG, 2/D
     Route: 048

REACTIONS (2)
  - CEREBRAL INFARCTION [None]
  - OFF LABEL USE [None]
